FAERS Safety Report 4763603-0 (Version None)
Quarter: 2005Q3

REPORT INFORMATION
  Report Type: 
  Country: None (occurrence: None)
  Receive Date: 20050908
  Receipt Date: 20050817
  Transmission Date: 20060218
  Serious: Yes (Other)
  Sender: FDA-Public Use
  Company Number: BR-MERCK-0508BRA00077

PATIENT
  Age: 85 Year
  Sex: Female
  Weight: 78 kg

DRUGS (4)
  1. COSOPT [Suspect]
     Indication: GLAUCOMA
     Route: 047
     Dates: start: 19990101
  2. AMLODIPINE BESYLATE [Concomitant]
     Indication: HYPERTENSION
     Route: 048
     Dates: start: 19990101
  3. ASPIRIN [Concomitant]
     Indication: ANGINA PECTORIS
     Route: 048
     Dates: start: 19990101
  4. PROPATYL NITRATE [Concomitant]
     Indication: ANGINA PECTORIS
     Route: 048
     Dates: start: 19990101

REACTIONS (4)
  - BLINDNESS UNILATERAL [None]
  - EYE PAIN [None]
  - OCULAR HYPERAEMIA [None]
  - SWELLING [None]
